FAERS Safety Report 5210501-4 (Version None)
Quarter: 2007Q1

REPORT INFORMATION
  Report Type: 
  Country: None (occurrence: None)
  Receive Date: 20070116
  Receipt Date: 20070116
  Transmission Date: 20070707
  Serious: Yes (Life-Threatening, Other)
  Sender: FDA-Public Use
  Company Number: None

PATIENT
  Age: 49 Year
  Sex: Female
  Weight: 76.2043 kg

DRUGS (3)
  1. GEODON [Suspect]
     Indication: SCHIZOPHRENIA
     Dosage: 80 MG DAILY
     Dates: start: 20050501
  2. GEODON [Suspect]
     Indication: SCHIZOPHRENIA
     Dosage: 80 MG DAILY
     Dates: start: 20051018
  3. RISPERDAL [Suspect]
     Indication: BIPOLAR DISORDER
     Dosage: 25 DAILY
     Dates: start: 20051024

REACTIONS (1)
  - DRUG INTERACTION [None]
